FAERS Safety Report 7364742-0 (Version None)
Quarter: 2011Q1

REPORT INFORMATION
  Report Type: 
  Country: None (occurrence: None)
  Receive Date: 20110321
  Receipt Date: 20110316
  Transmission Date: 20110831
  Serious: Yes (Death)
  Sender: FDA-Public Use
  Company Number: PHHY2011CA22037

PATIENT
  Age: 62 Year
  Sex: Female

DRUGS (1)
  1. TACROLIMUS [Suspect]

REACTIONS (3)
  - OSMOTIC DEMYELINATION SYNDROME [None]
  - ALTERED STATE OF CONSCIOUSNESS [None]
  - MUSCLE SPASTICITY [None]
